FAERS Safety Report 15415493 (Version 1)
Quarter: 2018Q3

REPORT INFORMATION
  Report Type: Report from Study
  Country: None (occurrence: GB)
  Receive Date: 20180922
  Receipt Date: 20180922
  Transmission Date: 20181010
  Serious: Yes (Hospitalization)
  Sender: FDA-Public Use
  Company Number: GB-ABBVIE-18S-167-2491031-00

PATIENT
  Sex: Male

DRUGS (1)
  1. DUODOPA [Suspect]
     Active Substance: CARBIDOPA\LEVODOPA
     Indication: PARKINSON^S DISEASE
     Dosage: 1 CASSETTE DAILY
     Route: 050

REACTIONS (10)
  - Prostatic disorder [Unknown]
  - Device alarm issue [Unknown]
  - Amnesia [Unknown]
  - Anxiety [Unknown]
  - Nocturia [Unknown]
  - Hallucination [Unknown]
  - Abnormal dreams [Unknown]
  - Dyskinesia [Unknown]
  - Depressed mood [Unknown]
  - Constipation [Unknown]
